FAERS Safety Report 11163611 (Version 2)
Quarter: 2016Q1

REPORT INFORMATION
  Report Type: Spontaneous
  Country: CA (occurrence: CA)
  Receive Date: 20150604
  Receipt Date: 20160315
  Transmission Date: 20160525
  Serious: Yes (Other)
  Sender: FDA-Public Use
  Company Number: CA-BAYER-2015-279658

PATIENT
  Age: 25 Year
  Sex: Female

DRUGS (2)
  1. ACETYLSALICYLIC ACID (} 100 MG) [Suspect]
     Active Substance: ASPIRIN
  2. FUROSEMIDE [FUROSEMIDE] [Suspect]
     Active Substance: FUROSEMIDE

REACTIONS (1)
  - Gout [Recovered/Resolved]
